FAERS Safety Report 25112519 (Version 9)
Quarter: 2025Q4

REPORT INFORMATION
  Report Type: Spontaneous
  Country: GB (occurrence: GB)
  Receive Date: 20250324
  Receipt Date: 20251114
  Transmission Date: 20260119
  Serious: Yes (Hospitalization, Other)
  Sender: MYLAN
  Company Number: GB-MYLANLABS-2025M1024015

PATIENT
  Age: 48 Year
  Sex: Male

DRUGS (3)
  1. CLOZARIL [Suspect]
     Active Substance: CLOZAPINE
     Indication: Schizophrenia
     Dosage: UNK
     Dates: start: 20011215, end: 20250518
  2. CLOZARIL [Suspect]
     Active Substance: CLOZAPINE
     Indication: Schizoaffective disorder
     Dosage: UNK (PROPOSED DATE OF COMMENCEMENT: 25-AUG-2025)
  3. CLOZARIL [Suspect]
     Active Substance: CLOZAPINE
     Dosage: UNK

REACTIONS (9)
  - Mental disorder [Unknown]
  - Lower respiratory tract infection [Unknown]
  - Lymphocytosis [Not Recovered/Not Resolved]
  - Chronic lymphocytic leukaemia [Unknown]
  - Pericarditis [Unknown]
  - Leukocytosis [Not Recovered/Not Resolved]
  - Eosinophil count decreased [Not Recovered/Not Resolved]
  - Neutrophil count increased [Unknown]
  - Off label use [Unknown]

NARRATIVE: CASE EVENT DATE: 20250318
